FAERS Safety Report 5250594-1 (Version None)
Quarter: 2007Q1

REPORT INFORMATION
  Report Type: 
  Country: None (occurrence: None)
  Receive Date: 20070228
  Receipt Date: 20060725
  Transmission Date: 20070707
  Serious: No
  Sender: FDA-Public Use
  Company Number: US-GLAXOSMITHKLINE-A0607754A

PATIENT
  Age: 24 Year
  Sex: Female

DRUGS (3)
  1. LAMICTAL [Suspect]
     Indication: PARTIAL SEIZURES
     Dosage: 400MG PER DAY
     Route: 048
     Dates: start: 20050101
  2. DILANTIN [Concomitant]
     Dosage: 400MG PER DAY
  3. FOLIC ACID [Concomitant]

REACTIONS (3)
  - DRUG LEVEL FLUCTUATING [None]
  - FATIGUE [None]
  - PHARMACEUTICAL PRODUCT COMPLAINT [None]
